FAERS Safety Report 9490672 (Version 1)
Quarter: 2013Q3

REPORT INFORMATION
  Report Type: Spontaneous
  Country: US (occurrence: US)
  Receive Date: 20130830
  Receipt Date: 20130830
  Transmission Date: 20140515
  Serious: No
  Sender: FDA-Public Use
  Company Number: US-B.I. PHARMACEUTICALS,INC./RIDGEFIELD-2013-BI-26008BP

PATIENT
  Sex: Female

DRUGS (1)
  1. COMBIVENT [Suspect]
     Indication: PRODUCT USED FOR UNKNOWN INDICATION
     Route: 055
     Dates: start: 201304, end: 20130819

REACTIONS (3)
  - Swollen tongue [Not Recovered/Not Resolved]
  - Lip swelling [Not Recovered/Not Resolved]
  - Candida infection [Not Recovered/Not Resolved]
